FAERS Safety Report 7460296-9 (Version None)
Quarter: 2011Q2

REPORT INFORMATION
  Report Type: 
  Country: None (occurrence: None)
  Receive Date: 20110505
  Receipt Date: 20110421
  Transmission Date: 20111010
  Serious: Yes (Hospitalization)
  Sender: FDA-Public Use
  Company Number: US-JNJFOC-20091001615

PATIENT
  Sex: Male
  Weight: 78.02 kg

DRUGS (9)
  1. ACETAMINOPHEN [Concomitant]
     Indication: PREMEDICATION
  2. REMICADE [Suspect]
     Indication: CROHN'S DISEASE
     Dosage: 30 TOTAL INFUSIONS
     Route: 042
  3. REMICADE [Suspect]
     Dosage: 7 INFUSIONS ADMINISTERED PRIOR TO ENROLLMENT
     Route: 042
  4. REMICADE [Suspect]
     Dosage: 17 TOTAL INFUSIONS
     Route: 042
  5. MESALAMINE [Concomitant]
     Indication: CROHN'S DISEASE
  6. ACETAMINOPHEN [Concomitant]
  7. ANTIHISTAMINES [Concomitant]
  8. MOBIC [Suspect]
     Indication: MYALGIA
  9. ANTIHISTAMINES [Concomitant]
     Indication: PREMEDICATION

REACTIONS (6)
  - HEPATIC FUNCTION ABNORMAL [None]
  - GASTRITIS EROSIVE [None]
  - METABOLIC ACIDOSIS [None]
  - RENAL IMPAIRMENT [None]
  - MYELODYSPLASTIC SYNDROME [None]
  - COAGULOPATHY [None]
